FAERS Safety Report 9038597 (Version 1)
Quarter: 2013Q1

REPORT INFORMATION
  Report Type: Spontaneous
  Country: US (occurrence: US)
  Receive Date: 20130129
  Receipt Date: 20130129
  Transmission Date: 20140127
  Serious: No
  Sender: FDA-Public Use
  Company Number: US-ABBOTT-12P-163-0935124-00

PATIENT
  Age: 59 None
  Sex: 0
  Weight: 56.3 kg

DRUGS (2)
  1. HUMIRA 40 MG/ 0.8 ML PRE-FILLED SYRINGE [Suspect]
     Indication: RHEUMATOID ARTHRITIS
     Dates: start: 201110
  2. IMURAN [Concomitant]
     Indication: PRODUCT USED FOR UNKNOWN INDICATION

REACTIONS (4)
  - Increased tendency to bruise [Not Recovered/Not Resolved]
  - Pain [Not Recovered/Not Resolved]
  - Incorrect storage of drug [Recovered/Resolved]
  - Incorrect product storage [Recovered/Resolved]
